FAERS Safety Report 13725606 (Version 2)
Quarter: 2017Q3

REPORT INFORMATION
  Report Type: Spontaneous
  Country: US (occurrence: US)
  Receive Date: 20170706
  Receipt Date: 20170818
  Transmission Date: 20171127
  Serious: Yes (Other)
  Sender: FDA-Public Use
  Company Number: US-TEVA-782496USA

PATIENT
  Sex: Female

DRUGS (1)
  1. ALENDRONATE SODIUM. [Suspect]
     Active Substance: ALENDRONATE SODIUM
     Indication: OSTEOPOROSIS
     Dates: start: 201704, end: 20170621

REACTIONS (3)
  - Dizziness [Unknown]
  - Nausea [Not Recovered/Not Resolved]
  - Deafness bilateral [Unknown]

NARRATIVE: CASE EVENT DATE: 201705
